FAERS Safety Report 4686059-5 (Version None)
Quarter: 2005Q2

REPORT INFORMATION
  Report Type: 
  Country: None (occurrence: None)
  Receive Date: 20050609
  Receipt Date: 20050531
  Transmission Date: 20051028
  Serious: Yes (Hospitalization, Other)
  Sender: FDA-Public Use
  Company Number: IN-BRISTOL-MYERS SQUIBB COMPANY-12988184

PATIENT
  Age: 38 Year
  Sex: Female

DRUGS (6)
  1. MEGACE [Suspect]
     Indication: HIV WASTING SYNDROME
     Route: 048
     Dates: start: 20050324, end: 20050324
  2. LAMIVUDINE [Concomitant]
     Indication: HIV INFECTION
     Dates: start: 20040412
  3. STAVUDINE [Concomitant]
     Indication: HIV INFECTION
     Dates: start: 20040412
  4. NEVIRAPINE [Concomitant]
     Indication: HIV INFECTION
     Dates: start: 20050412
  5. LASILACTONE [Concomitant]
     Indication: OEDEMA
     Dates: start: 20050310, end: 20050317
  6. BACTRIM DS [Concomitant]
     Indication: INFECTION PROPHYLAXIS
     Dates: start: 20040412

REACTIONS (3)
  - CARDIAC FAILURE CONGESTIVE [None]
  - DEMYELINATING POLYNEUROPATHY [None]
  - THROMBOCYTOPENIA [None]
